FAERS Safety Report 5982866-7 (Version None)
Quarter: 2008Q4

REPORT INFORMATION
  Report Type: 
  Country: None (occurrence: None)
  Receive Date: 20081208
  Receipt Date: 20080303
  Transmission Date: 20090506
  Serious: No
  Sender: FDA-Public Use
  Company Number: US-AMGEN-KDL267929

PATIENT
  Sex: Female

DRUGS (2)
  1. ENBREL [Suspect]
     Indication: ANKYLOSING SPONDYLITIS
     Route: 058
     Dates: start: 20050401
  2. METHOTREXATE [Concomitant]
     Dates: start: 20070201

REACTIONS (3)
  - ANKYLOSING SPONDYLITIS [None]
  - INJECTION SITE HAEMATOMA [None]
  - VULVOVAGINAL MYCOTIC INFECTION [None]
